FAERS Safety Report 4848474-6 (Version None)
Quarter: 2005Q4

REPORT INFORMATION
  Report Type: 
  Country: None (occurrence: None)
  Receive Date: 20051208
  Receipt Date: 20051202
  Transmission Date: 20060501
  Serious: Yes (Death)
  Sender: FDA-Public Use
  Company Number: KR-AVENTIS-200520650GDDC

PATIENT
  Age: 56 Year
  Sex: Male
  Weight: 49.35 kg

DRUGS (5)
  1. TAXOTERE [Suspect]
     Indication: GASTRIC CANCER
     Route: 042
     Dates: start: 20040511, end: 20040511
  2. CISPLATIN [Suspect]
     Indication: GASTRIC CANCER
     Route: 042
     Dates: start: 20040511, end: 20040515
  3. FLUOROURACIL [Suspect]
     Indication: GASTRIC CANCER
     Route: 042
     Dates: start: 20040511, end: 20040515
  4. MACPERAN [Concomitant]
     Indication: NAUSEA
     Route: 042
     Dates: start: 20040511, end: 20040515
  5. NAVOBAN [Concomitant]
     Indication: NAUSEA
     Route: 042
     Dates: start: 20040511, end: 20040515

REACTIONS (4)
  - DIARRHOEA HAEMORRHAGIC [None]
  - ENTEROCOLITIS HAEMORRHAGIC [None]
  - HYPOVOLAEMIC SHOCK [None]
  - PANCYTOPENIA [None]
